FAERS Safety Report 8237197-1 (Version None)
Quarter: 2012Q1

REPORT INFORMATION
  Report Type: 
  Country: None (occurrence: None)
  Receive Date: 20120327
  Receipt Date: 20120327
  Transmission Date: 20120608
  Serious: No
  Sender: FDA-Public Use
  Company Number: None

PATIENT
  Age: 32 Year
  Sex: Male
  Weight: 79.378 kg

DRUGS (1)
  1. LARIAM [Suspect]
     Indication: MALARIA PROPHYLAXIS
     Dosage: 250MG
     Route: 048
     Dates: start: 19930511, end: 19930901

REACTIONS (3)
  - AMNESIA [None]
  - IRRITABLE BOWEL SYNDROME [None]
  - TINNITUS [None]
